FAERS Safety Report 5155040-4 (Version None)
Quarter: 2006Q4

REPORT INFORMATION
  Report Type: 
  Country: None (occurrence: None)
  Receive Date: 20061121
  Receipt Date: 20061025
  Transmission Date: 20070319
  Serious: Yes (Death, Other)
  Sender: FDA-Public Use
  Company Number: US-ELI_LILLY_AND_COMPANY-US200610004733

PATIENT
  Age: 81 Year
  Sex: Male
  Weight: 73.015 kg

DRUGS (4)
  1. VITAMIN B-12 [Concomitant]
     Dosage: 1 MG, OTHER
     Route: 030
     Dates: start: 20060301
  2. FOLIC ACID [Concomitant]
     Dosage: 1 MG, DAILY (1/D)
     Dates: start: 20060301
  3. DECADRON [Concomitant]
     Dosage: 4 MG, OTHER
     Route: 065
     Dates: start: 20060401, end: 20060101
  4. ALIMTA [Suspect]
     Indication: NON-SMALL CELL LUNG CANCER
     Dosage: 500 MG/M2, UNK
     Dates: start: 20060404, end: 20060718

REACTIONS (2)
  - PNEUMONIA [None]
  - PNEUMONITIS [None]
